FAERS Safety Report 8334582-4 (Version None)
Quarter: 2012Q2

REPORT INFORMATION
  Report Type: 
  Country: None (occurrence: None)
  Receive Date: 20120503
  Receipt Date: 20110620
  Transmission Date: 20120825
  Serious: Yes (Other)
  Sender: FDA-Public Use
  Company Number: US-TEVA-2011001863

PATIENT
  Sex: Female
  Weight: 61.29 kg

DRUGS (7)
  1. EFFEXOR [Concomitant]
     Dates: start: 20010101
  2. ASPIRIN [Concomitant]
     Dates: start: 20010101
  3. NUVIGIL [Suspect]
     Dosage: 150 MILLIGRAM;
     Route: 048
     Dates: start: 20110101
  4. KLONOPIN [Concomitant]
     Dates: start: 20100101
  5. NUVIGIL [Suspect]
     Indication: NARCOLEPSY
     Dosage: 300 MILLIGRAM;
     Route: 048
     Dates: start: 20110101, end: 20110101
  6. ATENOLOL [Concomitant]
     Dates: start: 20010101
  7. ULTRAM [Concomitant]

REACTIONS (4)
  - DEPRESSION [None]
  - SUICIDAL IDEATION [None]
  - CATAPLEXY [None]
  - FEELING ABNORMAL [None]
